FAERS Safety Report 9394587 (Version 2)
Quarter: 2013Q3

REPORT INFORMATION
  Report Type: Spontaneous
  Country: JP (occurrence: JP)
  Receive Date: 20130711
  Receipt Date: 20130913
  Transmission Date: 20140515
  Serious: Yes (Other)
  Sender: FDA-Public Use
  Company Number: JP-ELI_LILLY_AND_COMPANY-JP201307001094

PATIENT
  Age: 86 Year
  Sex: Female
  Weight: 43 kg

DRUGS (21)
  1. EVISTA [Suspect]
     Indication: OSTEOPOROSIS
     Dosage: 60 MG, EACH MORNING
     Route: 048
  2. HALCION [Concomitant]
     Dosage: 0.25 MG, QD
     Route: 048
  3. MEILAX [Concomitant]
     Dosage: 0.5 MG, EACH MORNING
     Route: 048
  4. LORCAM [Concomitant]
     Dosage: 4 MG, BID
     Route: 048
  5. INDERAL [Concomitant]
     Dosage: 10 MG, EACH MORNING
     Route: 048
  6. LASIX                              /00032601/ [Concomitant]
     Dosage: 10 MG, EACH MORNING
     Route: 048
  7. ARTIST [Concomitant]
     Dosage: 5 MG, EACH MORNING
     Route: 048
  8. HERBESSER R [Concomitant]
     Dosage: 100 MG, EACH EVENING
     Route: 048
  9. LIVALO [Concomitant]
     Dosage: 2 MG, EACH EVENING
     Route: 048
  10. BISOLVON [Concomitant]
     Dosage: 4 MG, TID
     Route: 048
  11. UNICON [Concomitant]
     Dosage: 200 MG, BID
     Route: 048
  12. REBAMIPIDE [Concomitant]
     Dosage: 100 MG, BID
     Route: 048
  13. OMEPRAL                            /00661201/ [Concomitant]
     Dosage: 20 MG, EACH EVENING
     Route: 048
  14. ONEALFA [Concomitant]
     Dosage: 1 UG, EACH MORNING
     Route: 048
  15. RETICOLAN [Concomitant]
     Dosage: 500 UG, TID
     Route: 048
  16. POTASSIUM CHLORIDE [Concomitant]
     Dosage: 600 MG, BID
  17. BUFFERIN                           /00009201/ [Concomitant]
     Dosage: 81 MG, EACH MORNING
     Route: 048
  18. ALLOZYM [Concomitant]
     Dosage: 100 MG, BID
     Route: 048
  19. ALLEGRA [Concomitant]
     Dosage: 60 MG, BID
     Route: 048
  20. KIPRES [Concomitant]
     Dosage: 10 MG, EACH EVENING
     Route: 048
  21. CLARITHROMYCIN [Concomitant]
     Dosage: 200 MG, EACH MORNING
     Route: 048

REACTIONS (3)
  - Fall [Recovered/Resolved]
  - Tibia fracture [Recovering/Resolving]
  - X-ray limb abnormal [Unknown]
